FAERS Safety Report 9798136 (Version 1)
Quarter: 2014Q1

REPORT INFORMATION
  Report Type: Spontaneous
  Country: US (occurrence: None)
  Receive Date: 20140103
  Receipt Date: 20140103
  Transmission Date: 20141002
  Serious: Yes (Death)
  Sender: FDA-Public Use
  Company Number: None

PATIENT
  Age: 82 Year
  Sex: Male

DRUGS (1)
  1. TIKOSYN [Suspect]
     Route: 048
     Dates: start: 20110609, end: 20131201

REACTIONS (1)
  - Respiratory disorder [None]
